FAERS Safety Report 22300886 (Version 3)
Quarter: 2024Q3

REPORT INFORMATION
  Report Type: Spontaneous
  Country: US (occurrence: US)
  Receive Date: 20230509
  Receipt Date: 20240808
  Transmission Date: 20241016
  Serious: No
  Sender: SANOFI AVENTIS
  Company Number: US-SA-SAC20230504000166

PATIENT
  Age: 55 Year
  Sex: Male

DRUGS (1)
  1. DUPIXENT [Suspect]
     Active Substance: DUPILUMAB
     Indication: Asthma
     Dosage: 300 MG, QOW
     Route: 058
     Dates: start: 2023

REACTIONS (8)
  - Injection site mass [Recovered/Resolved]
  - Injection site swelling [Unknown]
  - Injection site pain [Unknown]
  - Rash [Unknown]
  - Dry eye [Unknown]
  - Accidental exposure to product [Unknown]
  - Exposure via skin contact [Unknown]
  - Device operational issue [Unknown]

NARRATIVE: CASE EVENT DATE: 20240721
